FAERS Safety Report 10142048 (Version 2)
Quarter: 2014Q2

REPORT INFORMATION
  Report Type: Report from Study
  Country: US (occurrence: US)
  Receive Date: 20140429
  Receipt Date: 20140429
  Transmission Date: 20141212
  Serious: Yes (Other)
  Sender: FDA-Public Use
  Company Number: US-ABBVIE-14P-163-1212525-00

PATIENT
  Sex: Female
  Weight: 63.56 kg

DRUGS (1)
  1. LUPRON DEPOT [Suspect]
     Indication: UTERINE LEIOMYOMA

REACTIONS (4)
  - Uterine leiomyoma [Unknown]
  - Haemorrhage [Unknown]
  - Menorrhagia [Unknown]
  - Uterine polyp [Recovered/Resolved]
